FAERS Safety Report 16414350 (Version 1)
Quarter: 2019Q2

REPORT INFORMATION
  Report Type: Spontaneous
  Country: SE (occurrence: SE)
  Receive Date: 20190611
  Receipt Date: 20190611
  Transmission Date: 20190711
  Serious: Yes (Other)
  Sender: FDA-Public Use
  Company Number: SE-MYLANLABS-2019M1053986

PATIENT
  Age: 73 Year
  Sex: Female

DRUGS (3)
  1. PIPERACILLIN/TAZOBACTAM [Concomitant]
     Active Substance: PIPERACILLIN SODIUM\TAZOBACTAM SODIUM
     Dates: end: 201810
  2. NOXAFIL [Concomitant]
     Active Substance: POSACONAZOLE
     Dates: end: 201810
  3. ERY-MAX [Suspect]
     Active Substance: ERYTHROMYCIN
     Indication: PERTUSSIS
     Dosage: 1000 MILLIGRAM, QD
     Route: 065
     Dates: end: 201810

REACTIONS (1)
  - Skin reaction [Not Recovered/Not Resolved]

NARRATIVE: CASE EVENT DATE: 201810
